FAERS Safety Report 9508150 (Version 1)
Quarter: 2013Q1

REPORT INFORMATION
  Report Type: Spontaneous
  Country: US (occurrence: None)
  Receive Date: 20130305
  Receipt Date: 20130305
  Transmission Date: 20140127
  Serious: Yes (Other)
  Sender: FDA-Public Use
  Company Number: 163-21880-12082621

PATIENT
  Age: 67 Year
  Sex: Male

DRUGS (2)
  1. REVLIMID (LENALIDOMIDE) (15 MILLIGRAM, CAPSULES) [Suspect]
     Indication: PLASMA CELL MYELOMA
     Dosage: CAPSULE, 15 MG, 28 IN 28 D, PO, TEMPORARILY INTERRUPTED
     Dates: start: 20120725
  2. VALACYCLOVIR [Concomitant]

REACTIONS (3)
  - Exfoliative rash [None]
  - Dry skin [None]
  - Insomnia [None]
